FAERS Safety Report 19004331 (Version 1)
Quarter: 2021Q1

REPORT INFORMATION
  Report Type: Spontaneous
  Country: PL (occurrence: PL)
  Receive Date: 20210312
  Receipt Date: 20210312
  Transmission Date: 20210420
  Serious: Yes (Hospitalization, Other)
  Sender: FDA-Public Use
  Company Number: PL-MYLANLABS-2021M1014040

PATIENT
  Age: 54 Year
  Sex: Female

DRUGS (7)
  1. AMLODIPINE [Suspect]
     Active Substance: AMLODIPINE BESYLATE
     Indication: HYPERTENSION
     Dosage: 10 MILLIGRAM, QD (10MG/DAY)
  2. ATORVASTATIN [Interacting]
     Active Substance: ATORVASTATIN
     Indication: DYSLIPIDAEMIA
     Dosage: 40 MILLIGRAM, QD (40MG/DAY)
  3. METOPROLOL. [Interacting]
     Active Substance: METOPROLOL
     Indication: BRADYCARDIA
     Dosage: UNK
  4. ROSUVASTATIN. [Interacting]
     Active Substance: ROSUVASTATIN
     Indication: PRODUCT USED FOR UNKNOWN INDICATION
     Dosage: UNK
  5. PERINDOPRIL [Interacting]
     Active Substance: PERINDOPRIL
     Indication: LIP SWELLING
     Dosage: UNK
  6. CELECOXIB. [Interacting]
     Active Substance: CELECOXIB
     Indication: BACK PAIN
  7. NEBIVOLOL. [Concomitant]
     Active Substance: NEBIVOLOL

REACTIONS (3)
  - Angioedema [Unknown]
  - Bradycardia [Unknown]
  - Drug interaction [Unknown]
